FAERS Safety Report 14451187 (Version 1)
Quarter: 2018Q1

REPORT INFORMATION
  Report Type: Spontaneous
  Country: US (occurrence: US)
  Receive Date: 20180129
  Receipt Date: 20180129
  Transmission Date: 20180509
  Serious: No
  Sender: FDA-Public Use
  Company Number: US-ABBVIE-17K-163-2146079-00

PATIENT
  Age: 55 Year
  Sex: Male

DRUGS (2)
  1. TALTZ [Concomitant]
     Active Substance: IXEKIZUMAB
     Indication: PSORIASIS
  2. HUMIRA [Suspect]
     Active Substance: ADALIMUMAB
     Indication: PSORIASIS
     Route: 058
     Dates: start: 2013, end: 2015

REACTIONS (6)
  - Hypoaesthesia [Recovering/Resolving]
  - Cellulitis [Recovered/Resolved]
  - Joint swelling [Not Recovered/Not Resolved]
  - Mobility decreased [Recovered/Resolved]
  - Gout [Not Recovered/Not Resolved]
  - Pain [Recovered/Resolved]

NARRATIVE: CASE EVENT DATE: 201704
